FAERS Safety Report 5210617-2 (Version None)
Quarter: 2006Q4

REPORT INFORMATION
  Report Type: 
  Country: None (occurrence: None)
  Receive Date: 20061106
  Receipt Date: 20060901
  Transmission Date: 20070319
  Serious: No
  Sender: FDA-Public Use
  Company Number: VNL_0198_2006

PATIENT
  Age: 72 Year
  Sex: Male
  Weight: 60.3284 kg

DRUGS (6)
  1. APOKYN [Suspect]
     Indication: PARKINSONISM
     Dosage: DF SC
     Route: 058
     Dates: start: 20060828
  2. LEXAPRO [Concomitant]
  3. NAMENDA [Concomitant]
  4. CLONOPIN [Concomitant]
  5. DDAVP (NEEDS NO REFRIGERATION) [Concomitant]
  6. COQ10 VITAMINS [Concomitant]

REACTIONS (1)
  - HYPOTENSION [None]
